FAERS Safety Report 7755691-4 (Version None)
Quarter: 2011Q3

REPORT INFORMATION
  Report Type: 
  Country: None (occurrence: None)
  Receive Date: 20110916
  Receipt Date: 20110912
  Transmission Date: 20111222
  Serious: Yes (Other)
  Sender: FDA-Public Use
  Company Number: US-JNJFOC-20110811058

PATIENT
  Age: 44 Year
  Sex: Female
  Weight: 104.33 kg

DRUGS (2)
  1. ZYRTEC [Suspect]
     Route: 048
  2. ZYRTEC [Suspect]
     Indication: HYPERSENSITIVITY
     Dosage: 2 IN A 24 HOUR PERIOD.
     Route: 048
     Dates: start: 20110101, end: 20110101

REACTIONS (6)
  - MUSCULOSKELETAL PAIN [None]
  - MYALGIA [None]
  - OVERDOSE [None]
  - ARTHRALGIA [None]
  - PRURITUS [None]
  - PAIN IN EXTREMITY [None]
